FAERS Safety Report 9616716 (Version 1)
Quarter: 2013Q4

REPORT INFORMATION
  Report Type: Spontaneous
  Country: US (occurrence: US)
  Receive Date: 20131011
  Receipt Date: 20131011
  Transmission Date: 20140711
  Serious: No
  Sender: FDA-Public Use
  Company Number: US-BAXTER-2013BAX020348

PATIENT
  Age: 38 Year
  Sex: Female

DRUGS (4)
  1. DIANEAL LOW CALCIUM [Suspect]
     Indication: PERITONEAL DIALYSIS
     Dosage: 9000
     Route: 033
     Dates: start: 20130425
  2. DIANEAL LOW CALCIUM [Suspect]
     Indication: PERITONEAL DIALYSIS
     Dosage: 9000
     Route: 033
     Dates: start: 20130425
  3. NORVASC [Suspect]
     Indication: BLOOD PRESSURE
     Route: 065
     Dates: start: 20130429, end: 20130510
  4. ATENOLOL [Suspect]
     Indication: BLOOD PRESSURE
     Route: 065
     Dates: start: 20130429, end: 20130510

REACTIONS (1)
  - Blood pressure decreased [Recovered/Resolved]
